FAERS Safety Report 19110538 (Version 1)
Quarter: 2021Q2

REPORT INFORMATION
  Report Type: Spontaneous
  Country: US (occurrence: US)
  Receive Date: 20210409
  Receipt Date: 20210409
  Transmission Date: 20210717
  Serious: Yes (Hospitalization, Other)
  Sender: FDA-Public Use
  Company Number: US-ABBVIE-21K-163-3846495-00

PATIENT
  Age: 63 Year
  Sex: Female
  Weight: 75.75 kg

DRUGS (6)
  1. LOPRESSOR [Concomitant]
     Active Substance: METOPROLOL TARTRATE
     Indication: BLOOD PRESSURE MEASUREMENT
  2. DEPAKOTE [Suspect]
     Active Substance: DIVALPROEX SODIUM
     Indication: SEIZURE
     Dosage: TAKE 1 TABLET IN THE MORNING AND 2 AT NIGHT
     Route: 048
     Dates: start: 2017
  3. PFIZER?BIONTECH COVID?19 VACCINE [Suspect]
     Active Substance: TOZINAMERAN
     Indication: COVID-19 IMMUNISATION
     Route: 030
     Dates: start: 20210305, end: 20210305
  4. LISINOPRIL. [Concomitant]
     Active Substance: LISINOPRIL
     Indication: PRODUCT USED FOR UNKNOWN INDICATION
  5. PFIZER?BIONTECH COVID?19 VACCINE [Suspect]
     Active Substance: TOZINAMERAN
     Route: 030
     Dates: start: 20210326, end: 20210326
  6. LISINOPRIL HCTZ [Concomitant]
     Active Substance: HYDROCHLOROTHIAZIDE\LISINOPRIL
     Indication: PRODUCT USED FOR UNKNOWN INDICATION
     Dosage: 20MG/10MG TWICE DAILY

REACTIONS (13)
  - Seizure [Unknown]
  - Rash [Recovering/Resolving]
  - Allergy to arthropod sting [Unknown]
  - Feeling abnormal [Unknown]
  - Fall [Unknown]
  - Bipolar disorder [Unknown]
  - Headache [Recovered/Resolved]
  - Atrial fibrillation [Unknown]
  - Urticaria [Recovering/Resolving]
  - Blood pressure decreased [Unknown]
  - Human rhinovirus test positive [Unknown]
  - Concussion [Unknown]
  - Myalgia [Recovered/Resolved]

NARRATIVE: CASE EVENT DATE: 201709
